FAERS Safety Report 9491025 (Version 3)
Quarter: 2018Q1

REPORT INFORMATION
  Report Type: Spontaneous
  Country: US (occurrence: US)
  Receive Date: 20130830
  Receipt Date: 20180312
  Transmission Date: 20180509
  Serious: No
  Sender: FDA-Public Use
  Company Number: US-PFIZER INC-2013248994

PATIENT
  Age: 30 Year
  Sex: Male
  Weight: 72.57 kg

DRUGS (3)
  1. LYRICA [Suspect]
     Active Substance: PREGABALIN
     Dosage: 75 MG, AS NEEDED
  2. REBIF [Concomitant]
     Active Substance: INTERFERON BETA-1A
     Indication: SECONDARY PROGRESSIVE MULTIPLE SCLEROSIS
     Dosage: 44 UG, 3X/WEEK
  3. LYRICA [Suspect]
     Active Substance: PREGABALIN
     Indication: SECONDARY PROGRESSIVE MULTIPLE SCLEROSIS
     Dosage: 75 MG, 2X/DAY
     Dates: start: 2008

REACTIONS (1)
  - Drug ineffective for unapproved indication [Unknown]

NARRATIVE: CASE EVENT DATE: 2008
